FAERS Safety Report 25887618 (Version 1)
Quarter: 2025Q4

REPORT INFORMATION
  Report Type: Spontaneous
  Country: GB (occurrence: GB)
  Receive Date: 20251007
  Receipt Date: 20251007
  Transmission Date: 20260118
  Serious: Yes (Other)
  Sender: ACCORD
  Company Number: None

PATIENT
  Sex: Male

DRUGS (4)
  1. TADALAFIL [Suspect]
     Active Substance: TADALAFIL
     Indication: Adverse drug reaction
     Dosage: 20 MG AS NEEDED
  2. FINASTERIDE [Concomitant]
     Active Substance: FINASTERIDE
  3. IRBESARTAN [Concomitant]
     Active Substance: IRBESARTAN
  4. TAMSULOSIN [Concomitant]
     Active Substance: TAMSULOSIN

REACTIONS (1)
  - Depressed mood [Recovered/Resolved]
